FAERS Safety Report 23157698 (Version 1)
Quarter: 2023Q4

REPORT INFORMATION
  Report Type: Report from Study
  Country: US (occurrence: None)
  Receive Date: 20231108
  Receipt Date: 20231108
  Transmission Date: 20240110
  Serious: Yes (Hospitalization)
  Sender: FDA-Public Use
  Company Number: 2023A248049

PATIENT

DRUGS (3)
  1. FARXIGA [Suspect]
     Active Substance: DAPAGLIFLOZIN PROPANEDIOL
     Route: 048
  2. BRILINTA [Suspect]
     Active Substance: TICAGRELOR
     Route: 048
  3. BEVESPI AEROSPHERE [Suspect]
     Active Substance: FORMOTEROL FUMARATE\GLYCOPYRROLATE
     Route: 055

REACTIONS (2)
  - Renal failure [Unknown]
  - Myocardial infarction [Unknown]
